FAERS Safety Report 5114800-6 (Version None)
Quarter: 2006Q3

REPORT INFORMATION
  Report Type: 
  Country: None (occurrence: None)
  Receive Date: 20060922
  Receipt Date: 20060912
  Transmission Date: 20061208
  Serious: Yes (Other)
  Sender: FDA-Public Use
  Company Number: 2006-04918

PATIENT
  Age: 28 Year
  Sex: Female
  Weight: 153.7 kg

DRUGS (2)
  1. METRONIDAZOLE [Suspect]
     Indication: VAGINITIS BACTERIAL
     Dosage: 1 TABLET, BID X 7 DAYS, ORAL
     Route: 048
     Dates: start: 20060624, end: 20060701
  2. SYNTHROID [Concomitant]

REACTIONS (3)
  - ABORTION SPONTANEOUS [None]
  - DRUG EXPOSURE DURING PREGNANCY [None]
  - INTRA-UTERINE DEATH [None]
